FAERS Safety Report 24566944 (Version 1)
Quarter: 2024Q4

REPORT INFORMATION
  Report Type: Spontaneous
  Country: US (occurrence: US)
  Receive Date: 20241030
  Receipt Date: 20241030
  Transmission Date: 20250115
  Serious: Yes (Other)
  Sender: ALKERMES
  Company Number: US-ALKERMES INC.-ALK-2024-002748

PATIENT
  Age: 8 Decade
  Sex: Female

DRUGS (2)
  1. LYBALVI [Suspect]
     Active Substance: OLANZAPINE\SAMIDORPHAN L-MALATE
     Indication: Dementia
     Dosage: UNK MILLIGRAM, QD
     Route: 048
  2. OLANZAPINE [Concomitant]
     Active Substance: OLANZAPINE
     Indication: Agitation
     Dosage: UNK
     Route: 065

REACTIONS (5)
  - Hypersomnia [Recovered/Resolved]
  - Atrial fibrillation [Unknown]
  - Humerus fracture [Unknown]
  - Fall [Recovered/Resolved]
  - Off label use [Unknown]
